FAERS Safety Report 9708617 (Version 2)
Quarter: 2013Q4

REPORT INFORMATION
  Report Type: Spontaneous
  Country: US (occurrence: US)
  Receive Date: 20131125
  Receipt Date: 20131125
  Transmission Date: 20140711
  Serious: No
  Sender: FDA-Public Use
  Company Number: US-GILEAD-2013-0087073

PATIENT
  Sex: Female

DRUGS (4)
  1. LETAIRIS [Suspect]
     Indication: PULMONARY HYPERTENSION
     Dosage: 5 MG, QD
     Dates: start: 20130803
  2. LETAIRIS [Suspect]
     Indication: PULMONARY OEDEMA
  3. LETAIRIS [Suspect]
     Indication: CONNECTIVE TISSUE DISORDER
  4. COUMADIN                           /00014802/ [Concomitant]

REACTIONS (3)
  - Presyncope [Unknown]
  - Diplopia [Unknown]
  - Dizziness [Unknown]
